FAERS Safety Report 15550171 (Version 2)
Quarter: 2019Q3

REPORT INFORMATION
  Report Type: Spontaneous
  Country: DE (occurrence: DE)
  Receive Date: 20181025
  Receipt Date: 20190719
  Transmission Date: 20191004
  Serious: Yes (Hospitalization, Other)
  Sender: FDA-Public Use
  Company Number: DE-AUROBINDO-AUR-APL-2018-051830

PATIENT

DRUGS (7)
  1. TRIMIPRAMIN [Suspect]
     Active Substance: TRIMIPRAMINE
     Dosage: 20 DROP, TOTAL, 20 TROPFEN EINMALIG
     Route: 048
     Dates: start: 20160613
  2. TRIMIPRAMIN [Suspect]
     Active Substance: TRIMIPRAMINE
     Indication: SLEEP DISORDER
     Dosage: DAILY DOSE: 40 GTT DROP(S) EVERY TOTAL ; IN TOTAL
     Route: 065
  3. PIPAMPERON [Suspect]
     Active Substance: PIPAMPERONE HYDROCHLORIDE
     Indication: SLEEP DISORDER
     Dosage: 40 MILLIGRAM
     Route: 048
     Dates: start: 201708
  4. PIPAMPERON [Suspect]
     Active Substance: PIPAMPERONE HYDROCHLORIDE
     Dosage: 40 MILLIGRAM
     Route: 048
     Dates: start: 20160913
  5. MIRTAZAPINE. [Suspect]
     Active Substance: MIRTAZAPINE
     Indication: SLEEP DISORDER
     Dosage: 30 MILLIGRAM
     Route: 048
  6. QUETIAPIN 1A PHARMA [Suspect]
     Active Substance: QUETIAPINE
     Indication: SLEEP DISORDER
     Dosage: 25 MILLIGRAM
     Route: 048
     Dates: start: 201702
  7. QUETIAPIN 1A PHARMA [Suspect]
     Active Substance: QUETIAPINE
     Dosage: 25 MILLIGRAM
     Route: 048
     Dates: start: 20160913

REACTIONS (14)
  - Insomnia [Not Recovered/Not Resolved]
  - Apathy [Unknown]
  - Weight increased [Not Recovered/Not Resolved]
  - Fatigue [Not Recovered/Not Resolved]
  - Mood altered [Unknown]
  - Dependence [Unknown]
  - Binge eating [Not Recovered/Not Resolved]
  - Sleep apnoea syndrome [Unknown]
  - Temperature regulation disorder [Unknown]
  - Constipation [Not Recovered/Not Resolved]
  - Sleep disorder [Not Recovered/Not Resolved]
  - Respiratory disorder [Unknown]
  - Middle insomnia [Unknown]
  - Initial insomnia [Unknown]

NARRATIVE: CASE EVENT DATE: 20160613
